FAERS Safety Report 5117359-2 (Version None)
Quarter: 2006Q3

REPORT INFORMATION
  Report Type: 
  Country: None (occurrence: None)
  Receive Date: 20060929
  Receipt Date: 20060920
  Transmission Date: 20061208
  Serious: Yes (Hospitalization)
  Sender: FDA-Public Use
  Company Number: BE-JNJFOC-20060902763

PATIENT
  Age: 60 Year
  Sex: Male

DRUGS (5)
  1. REMICADE [Suspect]
     Indication: RHEUMATOID ARTHRITIS
     Route: 042
  2. METHOTREXATE [Concomitant]
     Indication: RHEUMATOID ARTHRITIS
     Route: 065
  3. MOTENS [Concomitant]
     Route: 065
  4. INDAPAMIDE [Concomitant]
     Route: 065
  5. ALLOPURINOL [Concomitant]
     Route: 065

REACTIONS (1)
  - TUBERCULOSIS [None]
